FAERS Safety Report 6608418-3 (Version None)
Quarter: 2010Q1

REPORT INFORMATION
  Report Type: 
  Country: None (occurrence: None)
  Receive Date: 20100301
  Receipt Date: 20100223
  Transmission Date: 20100710
  Serious: Yes (Other)
  Sender: FDA-Public Use
  Company Number: US-ELI_LILLY_AND_COMPANY-US201002006369

PATIENT
  Sex: Female

DRUGS (3)
  1. HUMULIN N [Suspect]
     Indication: DIABETES MELLITUS
     Dosage: UNK, AS NEEDED
  2. HUMALOG [Suspect]
  3. HUMULIN N [Suspect]
     Dosage: UNK, AS NEEDED
     Dates: start: 20030101

REACTIONS (7)
  - ANGER [None]
  - ARTHROPATHY [None]
  - HIP ARTHROPLASTY [None]
  - KNEE ARTHROPLASTY [None]
  - LIMB DISCOMFORT [None]
  - PRODUCT COMMINGLING [None]
  - RHEUMATOID ARTHRITIS [None]
